FAERS Safety Report 4382971-5 (Version None)
Quarter: 2004Q2

REPORT INFORMATION
  Report Type: 
  Country: None (occurrence: None)
  Receive Date: 20040617
  Receipt Date: 20040607
  Transmission Date: 20050107
  Serious: Yes (Other)
  Sender: FDA-Public Use
  Company Number: CAP04000149

PATIENT
  Age: 65 Year
  Sex: Female

DRUGS (5)
  1. ACTONEL [Suspect]
     Indication: OSTEOPOROSIS
     Dosage: 35 MG, 1 / WEEK, ORAL
     Route: 048
     Dates: start: 20040101
  2. SYNTHROID [Concomitant]
  3. DYAZIDE [Concomitant]
  4. INHIBACE ^BAYER^ (CILAZAPRIL) [Concomitant]
  5. PREDNISONE TAB [Concomitant]

REACTIONS (4)
  - ARTHRALGIA [None]
  - ARTHRITIS INFECTIVE [None]
  - ERYTHEMA [None]
  - JOINT SWELLING [None]
